FAERS Safety Report 5818609-7 (Version None)
Quarter: 2008Q3

REPORT INFORMATION
  Report Type: 
  Country: None (occurrence: None)
  Receive Date: 20080722
  Receipt Date: 20080715
  Transmission Date: 20090109
  Serious: No
  Sender: FDA-Public Use
  Company Number: US-ELI_LILLY_AND_COMPANY-US200806004480

PATIENT
  Sex: Female
  Weight: 91.61 kg

DRUGS (12)
  1. BYETTA [Suspect]
     Indication: TYPE 2 DIABETES MELLITUS
     Dosage: 5 UG, 2/D
     Route: 058
     Dates: start: 20070320, end: 20070428
  2. BYETTA [Suspect]
     Dosage: 10 UG, 2/D
     Route: 058
     Dates: start: 20070429
  3. PROZAC [Concomitant]
     Dosage: 20 MG, 2/D
     Route: 048
  4. NADOLOL [Concomitant]
     Indication: CARDIAC DISORDER
     Dosage: 80 MG, 2/D
     Route: 048
  5. LORAZEPAM [Concomitant]
     Indication: ANXIETY
     Dosage: 1 MG, 3/D
     Route: 048
  6. METFORMIN HCL [Concomitant]
     Indication: TYPE 2 DIABETES MELLITUS
     Dosage: 500 MG, 4/D
     Route: 048
  7. PREVACID [Concomitant]
     Dosage: 30 MG, DAILY (1/D)
     Route: 048
  8. ISOSORBIDE DINITRATE [Concomitant]
     Indication: CARDIAC DISORDER
     Dosage: 180 MG, DAILY (1/D)
     Route: 048
  9. TRICOR [Concomitant]
     Indication: CARDIAC DISORDER
     Dosage: 145 MG, DAILY (1/D)
  10. GLIPIZIDE [Concomitant]
     Indication: TYPE 2 DIABETES MELLITUS
     Dosage: 10 MG, 2/D
     Route: 048
  11. ASPIRIN [Concomitant]
     Dosage: 325 MG, UNK
     Route: 048
  12. LANTUS [Concomitant]
     Indication: TYPE 2 DIABETES MELLITUS
     Dosage: UNK, EACH EVENING
     Route: 058
     Dates: start: 20080401

REACTIONS (4)
  - BLOOD GLUCOSE INCREASED [None]
  - CATARACT [None]
  - DRUG INEFFECTIVE [None]
  - WEIGHT DECREASED [None]
